FAERS Safety Report 5843984-7 (Version None)
Quarter: 2008Q3

REPORT INFORMATION
  Report Type: 
  Country: None (occurrence: None)
  Receive Date: 20080813
  Receipt Date: 20080806
  Transmission Date: 20090109
  Serious: Yes (Other)
  Sender: FDA-Public Use
  Company Number: US-JNJCH-2008020712

PATIENT
  Age: 70 Year
  Sex: Female
  Weight: 49.9 kg

DRUGS (2)
  1. LISTERINE WHITENING QUICK DISSOLVING STRIPS [Suspect]
     Indication: DENTAL CARE
     Dosage: TEXT:2 STRIPS TWICE DAILY
     Route: 048
  2. EVISTA [Concomitant]
     Indication: BONE DISORDER
     Dosage: TEXT:1 TABLET ONCE DAILY
     Route: 048

REACTIONS (5)
  - FEELING ABNORMAL [None]
  - MEDICATION TAMPERING [None]
  - ORAL DISORDER [None]
  - PHARYNGEAL DISORDER [None]
  - TOOTH DISORDER [None]
